FAERS Safety Report 9034658 (Version 1)
Quarter: 2013Q1

REPORT INFORMATION
  Report Type: Spontaneous
  Country: US (occurrence: US)
  Receive Date: 20130128
  Receipt Date: 20130128
  Transmission Date: 20140127
  Serious: Yes (Hospitalization)
  Sender: FDA-Public Use
  Company Number: US-GLAXOSMITHKLINE-A1009792A

PATIENT
  Age: 54 Year
  Sex: Male

DRUGS (1)
  1. PROMACTA [Suspect]
     Indication: THROMBOCYTOPENIA
     Dosage: 25MG PER DAY
     Route: 048

REACTIONS (3)
  - Haematochezia [Unknown]
  - Liver disorder [Unknown]
  - Renal disorder [Unknown]
